FAERS Safety Report 8548268-4 (Version None)
Quarter: 2012Q3

REPORT INFORMATION
  Report Type: 
  Country: None (occurrence: None)
  Receive Date: 20120730
  Receipt Date: 20120723
  Transmission Date: 20120928
  Serious: Yes (Hospitalization)
  Sender: FDA-Public Use
  Company Number: US-AMGEN-USASP2012028348

PATIENT
  Age: 66 Year
  Sex: Female

DRUGS (1)
  1. ENBREL [Suspect]
     Indication: RHEUMATOID ARTHRITIS
     Dosage: 50 MG, QWK
     Dates: start: 20120127

REACTIONS (13)
  - OSTEOARTHRITIS [None]
  - ARTHRALGIA [None]
  - LACERATION [None]
  - DEHYDRATION [None]
  - AGGRESSION [None]
  - MASS [None]
  - DRUG INEFFECTIVE [None]
  - HYPERTENSION [None]
  - LOSS OF CONSCIOUSNESS [None]
  - FALL [None]
  - DEPRESSED MOOD [None]
  - HYPOKINESIA [None]
  - PAIN [None]
